FAERS Safety Report 14157200 (Version 2)
Quarter: 2018Q1

REPORT INFORMATION
  Report Type: Spontaneous
  Country: RU (occurrence: RU)
  Receive Date: 20171103
  Receipt Date: 20180219
  Transmission Date: 20180508
  Serious: Yes (Hospitalization)
  Sender: FDA-Public Use
  Company Number: RU-ASTRAZENECA-2017SF11181

PATIENT
  Age: 80 Year
  Sex: Female
  Weight: 72 kg

DRUGS (9)
  1. NOLPAZA [Concomitant]
     Active Substance: PANTOPRAZOLE SODIUM
  2. CORAXAN [Concomitant]
  3. CARDIOMAGNYL [Concomitant]
     Active Substance: ASPIRIN\MAGNESIUM HYDROXIDE
  4. CONCOR [Concomitant]
     Active Substance: BISOPROLOL FUMARATE
  5. PREDUCTAL A [Concomitant]
  6. ROSUVASTATIN. [Concomitant]
     Active Substance: ROSUVASTATIN
  7. DIUVER [Concomitant]
     Active Substance: TORSEMIDE
  8. BRILINTA [Suspect]
     Active Substance: TICAGRELOR
     Indication: MYOCARDIAL INFARCTION
     Route: 048
     Dates: start: 20170318
  9. LOSARTAN. [Concomitant]
     Active Substance: LOSARTAN

REACTIONS (3)
  - Chest pain [Not Recovered/Not Resolved]
  - Angina unstable [Recovered/Resolved]
  - Blood pressure fluctuation [Not Recovered/Not Resolved]
